FAERS Safety Report 14255084 (Version 1)
Quarter: 2017Q4

REPORT INFORMATION
  Report Type: Report from Study
  Country: None (occurrence: US)
  Receive Date: 20171206
  Receipt Date: 20171206
  Transmission Date: 20180321
  Serious: Yes (Hospitalization, Other)
  Sender: FDA-Public Use
  Company Number: US-ABBVIE-17K-163-2180614-00

PATIENT
  Age: 57 Year
  Sex: Female

DRUGS (1)
  1. HUMIRA [Suspect]
     Active Substance: ADALIMUMAB
     Indication: CROHN^S DISEASE
     Route: 058
     Dates: start: 2012

REACTIONS (8)
  - Ear infection viral [Unknown]
  - Post procedural complication [Unknown]
  - Infection susceptibility increased [Unknown]
  - Small intestinal obstruction [Recovered/Resolved]
  - Crohn^s disease [Unknown]
  - Sinusitis [Unknown]
  - Hypoacusis [Recovering/Resolving]
  - Ear infection bacterial [Unknown]

NARRATIVE: CASE EVENT DATE: 2015
